FAERS Safety Report 20309242 (Version 1)
Quarter: 2022Q1

REPORT INFORMATION
  Report Type: Report from Study
  Country: CN (occurrence: CN)
  Receive Date: 20220107
  Receipt Date: 20220107
  Transmission Date: 20220423
  Serious: No
  Sender: FDA-Public Use
  Company Number: CN-KARYOPHARM-2021KPT001660

PATIENT
  Age: 57 Year
  Sex: Male

DRUGS (1)
  1. SELINEXOR [Suspect]
     Active Substance: SELINEXOR
     Indication: Angiocentric lymphoma
     Dosage: UNK

REACTIONS (2)
  - Decreased appetite [Recovered/Resolved]
  - Mucosal infection [Unknown]

NARRATIVE: CASE EVENT DATE: 20211201
